FAERS Safety Report 10335923 (Version 1)
Quarter: 2014Q3

REPORT INFORMATION
  Report Type: Spontaneous
  Country: US (occurrence: US)
  Receive Date: 20140723
  Receipt Date: 20140723
  Transmission Date: 20150326
  Serious: Yes (Life-Threatening, Hospitalization)
  Sender: FDA-Public Use
  Company Number: US-BRISTOL-MYERS SQUIBB COMPANY-19345180

PATIENT
  Age: 76 Year
  Sex: Female
  Weight: 97.5 kg

DRUGS (1)
  1. COUMADIN [Suspect]
     Active Substance: WARFARIN SODIUM
     Indication: THROMBOSIS
     Dates: start: 1992

REACTIONS (3)
  - Drug intolerance [Unknown]
  - Haemorrhage [Unknown]
  - Syncope [Unknown]
